FAERS Safety Report 9889014 (Version 4)
Quarter: 2014Q1

REPORT INFORMATION
  Report Type: Spontaneous
  Country: US (occurrence: None)
  Receive Date: 20140207
  Receipt Date: 20140227
  Transmission Date: 20141002
  Serious: Yes (Hospitalization)
  Sender: FDA-Public Use
  Company Number: UTC-043314

PATIENT
  Age: 54 Year
  Sex: Female
  Weight: 106.8 kg

DRUGS (1)
  1. REMODULIN [Suspect]
     Indication: COR PULMONALE CHRONIC
     Dosage: 20.16 UG/KG (0.014 UG/KG, 1 IN 1MIN), INTRAVENOUS
     Dates: start: 20131211

REACTIONS (4)
  - Bronchitis [None]
  - Device related infection [None]
  - Urinary tract infection [None]
  - Pulmonary arterial hypertension [None]
